FAERS Safety Report 21822967 (Version 1)
Quarter: 2023Q1

REPORT INFORMATION
  Report Type: Spontaneous
  Country: US (occurrence: US)
  Receive Date: 20230105
  Receipt Date: 20230105
  Transmission Date: 20230417
  Serious: Yes (Other)
  Sender: FDA-Public Use
  Company Number: US-AMNEAL PHARMACEUTICALS-2022-AMRX-01238

PATIENT
  Age: 33 Year
  Sex: Female
  Weight: 67.12 kg

DRUGS (11)
  1. ACTIVELLA [Suspect]
     Active Substance: ESTRADIOL\NORETHINDRONE ACETATE
     Indication: Endometriosis
     Dosage: 1 DOSAGE FORM, 1 /DAY
     Route: 048
     Dates: start: 20190320, end: 20211118
  2. ELAGOLIX [Suspect]
     Active Substance: ELAGOLIX
     Indication: Endometriosis
     Dosage: 200 MILLIGRAM, 2 /DAY
     Route: 048
     Dates: start: 20190320, end: 20211118
  3. SIMETHICONE (DIMETHICONE) [Concomitant]
     Active Substance: DIMETHICONE
     Indication: Flatulence
     Dosage: 40 MILLIGRAM 1 AS REQUIRED
     Route: 048
     Dates: start: 2014
  4. DIETARY SUPPLEMENT\HERBALS\MILK THISTLE [Concomitant]
     Active Substance: DIETARY SUPPLEMENT\HERBALS\MILK THISTLE
     Indication: Nutritional supplementation
     Dosage: 250 MILLIGRAM, 3 /DAY
     Route: 048
     Dates: start: 20200220
  5. MONTELUKAST [Concomitant]
     Active Substance: MONTELUKAST SODIUM
     Indication: Seasonal allergy
     Dosage: 10 MILLIGRAM, 1 /DAY
     Route: 048
     Dates: start: 20200220
  6. XYZAL [Concomitant]
     Active Substance: LEVOCETIRIZINE DIHYDROCHLORIDE
     Indication: Seasonal allergy
     Dosage: 5 MILLIGRAM, 1 /DAY
     Route: 048
     Dates: start: 20200220
  7. VITAMIN D2 [Concomitant]
     Active Substance: ERGOCALCIFEROL
     Indication: Hypovitaminosis
     Dosage: 5000 INTERNATIONAL UNIT, 1 /WEEK
     Route: 048
     Dates: start: 20190509
  8. RIMEGEPANT SULFATE [Concomitant]
     Active Substance: RIMEGEPANT SULFATE
     Indication: Migraine
     Dosage: 1 TABLET, 1 EVERY OTHER DAY
     Route: 048
     Dates: start: 20210830
  9. ACETAMINOPHEN\CODEINE PHOSPHATE [Concomitant]
     Active Substance: ACETAMINOPHEN\CODEINE PHOSPHATE
     Indication: Endometriosis
     Dosage: 300MG-30MG 1 AS REQUIRED
     Route: 048
     Dates: start: 20210901
  10. ACETAMINOPHEN\CODEINE PHOSPHATE [Concomitant]
     Active Substance: ACETAMINOPHEN\CODEINE PHOSPHATE
     Dosage: UNK
     Route: 065
     Dates: start: 20180806
  11. IBUPROFEN [Concomitant]
     Active Substance: IBUPROFEN
     Indication: Endometriosis
     Dosage: UNK
     Route: 065
     Dates: start: 20180217

REACTIONS (1)
  - Exposure during pregnancy [Unknown]
